FAERS Safety Report 15545641 (Version 1)
Quarter: 2018Q4

REPORT INFORMATION
  Report Type: Spontaneous
  Country: AU (occurrence: AU)
  Receive Date: 20181024
  Receipt Date: 20181024
  Transmission Date: 20190205
  Serious: Yes (Other)
  Sender: FDA-Public Use
  Company Number: AU-MYLANLABS-2017M1051722

PATIENT
  Sex: Female

DRUGS (50)
  1. CLOZARIL [Suspect]
     Active Substance: CLOZAPINE
     Dosage: 225 MG, UNK
     Dates: start: 20160517
  2. CLOZARIL [Suspect]
     Active Substance: CLOZAPINE
     Dosage: 425 MG, UNK
     Dates: start: 20160607
  3. CLOZARIL [Suspect]
     Active Substance: CLOZAPINE
     Dosage: 675 MG, UNK
     Dates: start: 20160629
  4. CLOZARIL [Suspect]
     Active Substance: CLOZAPINE
     Dosage: 650 MG, UNK
     Dates: start: 20160719
  5. CLOZARIL [Suspect]
     Active Substance: CLOZAPINE
     Dosage: UNK
     Dates: start: 20160909
  6. CLOZARIL [Suspect]
     Active Substance: CLOZAPINE
     Dosage: 600 MG, UNK
     Dates: start: 20170314
  7. CLOZARIL [Suspect]
     Active Substance: CLOZAPINE
     Dosage: 50 MG, UNK
     Dates: start: 20170713
  8. CLOZARIL [Suspect]
     Active Substance: CLOZAPINE
     Dosage: 450 MG, UNK
     Dates: start: 20170730
  9. CLOZARIL [Suspect]
     Active Substance: CLOZAPINE
     Dosage: 300 MG, UNK
     Dates: start: 20150610
  10. CLOZARIL [Suspect]
     Active Substance: CLOZAPINE
     Dosage: UNK
     Dates: start: 20160429
  11. CLOZARIL [Suspect]
     Active Substance: CLOZAPINE
     Dosage: 12.5 MG, UNK
     Dates: start: 20160503
  12. CLOZARIL [Suspect]
     Active Substance: CLOZAPINE
     Dosage: 750 MG, UNK
     Dates: start: 20160802
  13. CLOZARIL [Suspect]
     Active Substance: CLOZAPINE
     Dosage: 600 MG, UNK
     Dates: start: 20160919
  14. CLOZARIL [Suspect]
     Active Substance: CLOZAPINE
     Dosage: UNK
     Dates: start: 20170207
  15. CLOZARIL [Suspect]
     Active Substance: CLOZAPINE
     Indication: PRODUCT USED FOR UNKNOWN INDICATION
     Dosage: UNK
  16. CLOZARIL [Suspect]
     Active Substance: CLOZAPINE
     Dosage: 2.5 MG, UNK
     Dates: start: 20150523
  17. CLOZARIL [Suspect]
     Active Substance: CLOZAPINE
     Dosage: 300 MG, UNK
     Dates: start: 20160524
  18. CLOZARIL [Suspect]
     Active Substance: CLOZAPINE
     Dosage: 750 MG, UNK
     Dates: start: 20160706
  19. CLOZARIL [Suspect]
     Active Substance: CLOZAPINE
     Dosage: 625 MG, UNK
     Dates: start: 20160825
  20. CLOZARIL [Suspect]
     Active Substance: CLOZAPINE
     Dosage: 650 MG, UNK
     Dates: start: 20160916
  21. CLOZARIL [Suspect]
     Active Substance: CLOZAPINE
     Dosage: 600 MG, UNK
     Dates: start: 20161017
  22. CLOZARIL [Suspect]
     Active Substance: CLOZAPINE
     Dosage: 625 MG, UNK
     Dates: start: 20161212
  23. CLOZARIL [Suspect]
     Active Substance: CLOZAPINE
     Dosage: 12.5 MG, UNK
     Dates: start: 20170201
  24. CLOZARIL [Suspect]
     Active Substance: CLOZAPINE
     Dosage: 600 MG, UNK
     Dates: start: 20160622
  25. CLOZARIL [Suspect]
     Active Substance: CLOZAPINE
     Dosage: 750 MG, UNK
     Dates: start: 20160712
  26. CLOZARIL [Suspect]
     Active Substance: CLOZAPINE
     Dosage: 650 MG, UNK
     Dates: start: 20160905
  27. CLOZARIL [Suspect]
     Active Substance: CLOZAPINE
     Dosage: 625 MG, UNK
     Dates: start: 20170109
  28. CLOZARIL [Suspect]
     Active Substance: CLOZAPINE
     Dosage: 600 MG, UNK
     Dates: start: 20170221
  29. CLOZARIL [Suspect]
     Active Substance: CLOZAPINE
     Dosage: 600 MG, UNK
     Dates: start: 20170306
  30. CLOZARIL [Suspect]
     Active Substance: CLOZAPINE
     Dosage: 600 MG, UNK
     Dates: start: 20170510
  31. CLOZARIL [Suspect]
     Active Substance: CLOZAPINE
     Dosage: 650 MG, UNK
     Dates: start: 20160726
  32. CLOZARIL [Suspect]
     Active Substance: CLOZAPINE
     Dosage: 350 MG, UNK
     Dates: start: 20160912
  33. CLOZARIL [Suspect]
     Active Substance: CLOZAPINE
     Dosage: 625 MG, UNK
     Dates: start: 20161116
  34. CLOZARIL [Suspect]
     Active Substance: CLOZAPINE
     Dosage: UNK
     Dates: start: 20170719, end: 2017
  35. CLOZARIL [Suspect]
     Active Substance: CLOZAPINE
     Dosage: 250 MG, UNK
     Dates: start: 20170721
  36. CLOZARIL [Suspect]
     Active Substance: CLOZAPINE
     Dosage: 400 MG, UNK
     Dates: start: 20170807
  37. CLOZARIL [Suspect]
     Active Substance: CLOZAPINE
     Dosage: 300 MG, UNK
     Dates: start: 20150616
  38. CLOZARIL [Suspect]
     Active Substance: CLOZAPINE
     Dosage: 625 MG, UNK
     Dates: start: 20160817
  39. CLOZARIL [Suspect]
     Active Substance: CLOZAPINE
     Dosage: 125 MG, UNK
     Dates: start: 20150602
  40. CLOZARIL [Suspect]
     Active Substance: CLOZAPINE
     Dosage: 400 MG, UNK
     Dates: start: 20160531
  41. CLOZARIL [Suspect]
     Active Substance: CLOZAPINE
     Dosage: 750 MG, UNK
     Dates: start: 20160811
  42. CLOZARIL [Suspect]
     Active Substance: CLOZAPINE
     Dosage: 600 MG, UNK
     Dates: start: 20160922
  43. CLOZARIL [Suspect]
     Active Substance: CLOZAPINE
     Dosage: 525 MG, UNK
     Dates: start: 20170213
  44. CLOZARIL [Suspect]
     Active Substance: CLOZAPINE
     Dosage: 625 MG, UNK
     Dates: start: 20170217
  45. CLOZARIL [Suspect]
     Active Substance: CLOZAPINE
     Dosage: 600 MG, UNK
     Dates: start: 20170227
  46. CLOZARIL [Suspect]
     Active Substance: CLOZAPINE
     Dosage: 600 MG, UNK
     Dates: start: 20170606
  47. CLOZARIL [Suspect]
     Active Substance: CLOZAPINE
     Dosage: 175 MG, UNK
     Dates: start: 20160512
  48. CLOZARIL [Suspect]
     Active Substance: CLOZAPINE
     Dosage: 425 MG, UNK
     Dates: start: 20160614
  49. CLOZARIL [Suspect]
     Active Substance: CLOZAPINE
     Dosage: 650 MG, UNK
     Dates: start: 20160906
  50. CLOZARIL [Suspect]
     Active Substance: CLOZAPINE
     Dosage: 600 MG, UNK
     Dates: start: 20170411

REACTIONS (6)
  - Troponin increased [Unknown]
  - White blood cell count increased [Not Recovered/Not Resolved]
  - Neutrophil count increased [Recovered/Resolved]
  - Neutropenia [Recovered/Resolved]
  - Blood test abnormal [Unknown]
  - Antipsychotic drug level increased [Unknown]

NARRATIVE: CASE EVENT DATE: 20160429
